FAERS Safety Report 5795411-6 (Version None)
Quarter: 2008Q2

REPORT INFORMATION
  Report Type: 
  Country: None (occurrence: None)
  Receive Date: 20080630
  Receipt Date: 20080618
  Transmission Date: 20081010
  Serious: Yes (Other)
  Sender: FDA-Public Use
  Company Number: US-BAYER-200715473NA

PATIENT
  Age: 68 Year
  Sex: Male

DRUGS (1)
  1. NEXAVAR [Suspect]
     Indication: HEPATIC NEOPLASM MALIGNANT
     Dosage: TOTAL DAILY DOSE: 800 MG  UNIT DOSE: 200 MG
     Route: 048
     Dates: start: 20070915, end: 20080501

REACTIONS (7)
  - ALPHA 1 FOETOPROTEIN INCREASED [None]
  - GAIT DISTURBANCE [None]
  - HEPATIC NEOPLASM MALIGNANT [None]
  - MUSCLE SPASMS [None]
  - PAIN IN EXTREMITY [None]
  - SKIN WARM [None]
  - VEIN DISORDER [None]
